FAERS Safety Report 4456551-7 (Version None)
Quarter: 2004Q3

REPORT INFORMATION
  Report Type: 
  Country: None (occurrence: None)
  Receive Date: 20040921
  Receipt Date: 20040908
  Transmission Date: 20050211
  Serious: Yes (Death, Other)
  Sender: FDA-Public Use
  Company Number: 2004059951

PATIENT
  Age: 50 Year
  Sex: Male

DRUGS (9)
  1. NEURONTIN [Suspect]
     Indication: LIMB DISCOMFORT
     Dosage: 200 MG (100 MG, 2 IN 1 D), ORAL
     Route: 048
     Dates: start: 20040707, end: 20040707
  2. NEURONTIN [Suspect]
     Indication: NEUROPATHY
     Dosage: 200 MG (100 MG, 2 IN 1 D), ORAL
     Route: 048
     Dates: start: 20040707, end: 20040707
  3. MYCOPHENOLATE MOFETIL (MYCOPHENOLATE MOFETIL) [Concomitant]
  4. PREDNISONE [Concomitant]
  5. CYCLOSPORINE [Concomitant]
  6. CALCIUM CARBONATE (CALCIUM CARBONATE) [Concomitant]
  7. RANITIDINE HYDROCHLORIDE [Concomitant]
  8. ISONIAZID [Concomitant]
  9. BACTRIM [Concomitant]

REACTIONS (5)
  - ARRHYTHMIA [None]
  - CARDIO-RESPIRATORY ARREST [None]
  - CHEST PAIN [None]
  - INSOMNIA [None]
  - PARAESTHESIA [None]
